FAERS Safety Report 5624608-0 (Version None)
Quarter: 2008Q1

REPORT INFORMATION
  Report Type: 
  Country: None (occurrence: None)
  Receive Date: 20080213
  Receipt Date: 20080129
  Transmission Date: 20080703
  Serious: Yes (Hospitalization)
  Sender: FDA-Public Use
  Company Number: US-JNJFOC-20080106110

PATIENT
  Age: 40 Year
  Sex: Female
  Weight: 77.11 kg

DRUGS (15)
  1. ABILIFY [Suspect]
  2. ABILIFY [Suspect]
  3. ABILIFY [Suspect]
  4. ABILIFY [Suspect]
     Indication: SCHIZOPHRENIA
  5. ABILIFY [Suspect]
  6. ABILIFY [Suspect]
  7. ABILIFY [Suspect]
  8. ABILIFY [Suspect]
  9. PALIPERIDONE [Suspect]
     Indication: SCHIZOPHRENIA
     Route: 048
  10. CYMBALTA [Concomitant]
  11. CELEXA [Concomitant]
  12. KLONOPIN [Concomitant]
  13. LEVOTHYROXINE SODIUM [Concomitant]
  14. AMBIEN [Concomitant]
  15. NEURONTIN [Concomitant]

REACTIONS (2)
  - GENERALISED OEDEMA [None]
  - PSYCHOTIC DISORDER [None]
